FAERS Safety Report 9959047 (Version 1)
Quarter: 2014Q1

REPORT INFORMATION
  Report Type: Report from Study
  Country: US (occurrence: US)
  Receive Date: 20140305
  Receipt Date: 20140305
  Transmission Date: 20141002
  Serious: Yes (Other)
  Sender: FDA-Public Use
  Company Number: US-ABBVIE-13P-163-1106579-00

PATIENT
  Age: 31 Year
  Sex: Male

DRUGS (6)
  1. HUMIRA [Suspect]
     Indication: CROHN^S DISEASE
     Dates: start: 20120112
  2. METHOTREXATE [Concomitant]
     Indication: CROHN^S DISEASE
  3. OMEPRAZOLE [Concomitant]
     Indication: CROHN^S DISEASE
  4. CALCIUM [Concomitant]
     Indication: MINERAL SUPPLEMENTATION
  5. FOLIC ACID [Concomitant]
     Indication: VITAMIN SUPPLEMENTATION
  6. IRON [Concomitant]
     Indication: MINERAL SUPPLEMENTATION

REACTIONS (11)
  - Tooth infection [Not Recovered/Not Resolved]
  - Oedema mouth [Recovered/Resolved]
  - Crohn^s disease [Unknown]
  - Abdominal pain upper [Unknown]
  - Asthenia [Unknown]
  - Pyrexia [Recovered/Resolved]
  - Pyrexia [Recovered/Resolved]
  - Hyperhidrosis [Recovered/Resolved]
  - Fatigue [Unknown]
  - Pyrexia [Unknown]
  - Abdominal distension [Unknown]
